FAERS Safety Report 5961627-9 (Version None)
Quarter: 2008Q4

REPORT INFORMATION
  Report Type: 
  Country: None (occurrence: None)
  Receive Date: 20081121
  Receipt Date: 20081110
  Transmission Date: 20090506
  Serious: Yes (Hospitalization)
  Sender: FDA-Public Use
  Company Number: IT-WATSON-2008-06644

PATIENT

DRUGS (2)
  1. SULFASALAZINE [Suspect]
     Indication: SPONDYLOARTHROPATHY
     Dosage: 500 MG, DAILY
     Route: 048
  2. PREDNISONE TAB [Concomitant]
     Indication: SPONDYLOARTHROPATHY
     Dosage: 25 MG, DAILY
     Route: 048

REACTIONS (1)
  - DRUG RASH WITH EOSINOPHILIA AND SYSTEMIC SYMPTOMS [None]
